FAERS Safety Report 6698117-4 (Version None)
Quarter: 2010Q2

REPORT INFORMATION
  Report Type: 
  Country: None (occurrence: None)
  Receive Date: 20100427
  Receipt Date: 20100415
  Transmission Date: 20101027
  Serious: Yes (Other)
  Sender: FDA-Public Use
  Company Number: US-PFIZER INC-2010048102

PATIENT
  Sex: Male
  Weight: 90.703 kg

DRUGS (8)
  1. DEPO-TESTOSTERONE [Suspect]
     Indication: HORMONE REPLACEMENT THERAPY
     Dosage: 200 MG, UNK
     Dates: end: 20090101
  2. VIAGRA [Suspect]
     Indication: ERECTILE DYSFUNCTION
     Dosage: 100 MG, AS NEEDED
     Route: 048
  3. COZAAR [Suspect]
     Indication: HYPERTENSION
     Dosage: UNK
     Route: 048
     Dates: end: 20090101
  4. INSULIN [Concomitant]
     Indication: DIABETES MELLITUS
     Dosage: 2X/DAY: 40IU AT DAY, 35IU AT NIGHT
  5. ACETYLSALICYLIC ACID [Concomitant]
     Indication: ISCHAEMIC HEART DISEASE PROPHYLAXIS
     Dosage: 81 MG, 1X/DAY
     Route: 048
  6. DOXYCYCLINE [Concomitant]
     Indication: BRONCHITIS CHRONIC
     Dosage: 100 MG, UNK
  7. LISINOPRIL [Concomitant]
     Indication: HYPERTENSION
     Dosage: 20 MG, 1X/DAY
  8. HYDROMORPHONE [Concomitant]
     Indication: PAIN
     Dosage: 2 MG, AS NEEDED

REACTIONS (2)
  - HAEMOGLOBIN INCREASED [None]
  - SPERM COUNT DECREASED [None]
